FAERS Safety Report 7239138-2 (Version None)
Quarter: 2011Q1

REPORT INFORMATION
  Report Type: 
  Country: None (occurrence: None)
  Receive Date: 20110121
  Receipt Date: 20110112
  Transmission Date: 20110831
  Serious: Yes (Hospitalization)
  Sender: FDA-Public Use
  Company Number: US-CELGENEUS-163-21880-11011415

PATIENT
  Sex: Male
  Weight: 74.002 kg

DRUGS (22)
  1. TOPROL-XL [Concomitant]
     Route: 065
  2. KLOR-CON [Concomitant]
     Route: 065
  3. REVLIMID [Suspect]
     Indication: MYELODYSPLASTIC SYNDROME
     Route: 048
     Dates: start: 20100801, end: 20100901
  4. CALCIUM [Concomitant]
     Route: 065
  5. ASPIRIN [Concomitant]
     Route: 065
  6. REVLIMID [Suspect]
     Route: 048
     Dates: start: 20100913, end: 20110101
  7. METOCLOPRAM [Concomitant]
     Dosage: 5
     Route: 065
  8. FISH OIL [Concomitant]
     Route: 065
  9. MULTI-VITAMINS [Concomitant]
     Route: 065
  10. LIDODERM [Concomitant]
     Route: 065
  11. LASIX [Concomitant]
     Route: 065
  12. ZETIA [Concomitant]
     Route: 065
  13. OXYCODONE [Concomitant]
     Route: 065
  14. REVLIMID [Suspect]
     Route: 048
     Dates: start: 20110101
  15. PRILOSEC [Concomitant]
     Route: 065
  16. FLOMAX [Concomitant]
     Route: 065
  17. DILANTIN [Concomitant]
     Route: 065
  18. JANUVIA [Concomitant]
     Route: 065
  19. LEVOTHYROXINE SODIUM [Concomitant]
     Route: 065
  20. ALLOPURINOL [Concomitant]
     Route: 065
  21. COUMADIN [Concomitant]
     Route: 065
  22. ALDACTONE [Concomitant]
     Route: 065

REACTIONS (5)
  - SCROTAL SWELLING [None]
  - DISORIENTATION [None]
  - BLOOD PRESSURE DECREASED [None]
  - RASH [None]
  - NAUSEA [None]
